FAERS Safety Report 14991175 (Version 1)
Quarter: 2018Q2

REPORT INFORMATION
  Report Type: Report from Study
  Country: US (occurrence: US)
  Receive Date: 20180608
  Receipt Date: 20180608
  Transmission Date: 20180711
  Serious: Yes (Other)
  Sender: FDA-Public Use
  Company Number: PHEH2018US021941

PATIENT
  Sex: Male

DRUGS (1)
  1. NEORAL [Suspect]
     Active Substance: CYCLOSPORINE
     Indication: PRODUCT USED FOR UNKNOWN INDICATION
     Route: 065

REACTIONS (7)
  - Swelling face [Unknown]
  - Erythema [Unknown]
  - Peripheral swelling [Unknown]
  - Lung infection [Unknown]
  - Hypoacusis [Unknown]
  - Drug hypersensitivity [Unknown]
  - Urticaria [Unknown]
